FAERS Safety Report 24374348 (Version 1)
Quarter: 2024Q3

REPORT INFORMATION
  Report Type: Spontaneous
  Country: US (occurrence: None)
  Receive Date: 20240927
  Receipt Date: 20240927
  Transmission Date: 20241017
  Serious: Yes (Death, Life-Threatening, Hospitalization)
  Sender: Public
  Company Number: None

PATIENT
  Age: 81 Year
  Sex: Male
  Weight: 93.7 kg

DRUGS (2)
  1. YESCARTA [Suspect]
     Active Substance: AXICABTAGENE CILOLEUCEL
     Indication: Diffuse large B-cell lymphoma refractory
     Dosage: OTHER FREQUENCY : ONCE;?
     Route: 042
     Dates: start: 20240904, end: 20240904
  2. AMIODARONE [Suspect]
     Active Substance: AMIODARONE

REACTIONS (19)
  - Lymphocyte adoptive therapy [None]
  - Atrial fibrillation [None]
  - Cytokine release syndrome [None]
  - Immune effector cell-associated neurotoxicity syndrome [None]
  - Infusion related reaction [None]
  - Hypocalcaemia [None]
  - Hyponatraemia [None]
  - Inappropriate antidiuretic hormone secretion [None]
  - Blood fibrinogen decreased [None]
  - International normalised ratio increased [None]
  - Platelet count decreased [None]
  - Hypertension [None]
  - Liver function test increased [None]
  - Acute respiratory failure [None]
  - Pulseless electrical activity [None]
  - Disseminated intravascular coagulation [None]
  - Pulmonary oedema [None]
  - Infection [None]
  - Ischaemia [None]

NARRATIVE: CASE EVENT DATE: 20240910
